FAERS Safety Report 16243170 (Version 1)
Quarter: 2019Q2

REPORT INFORMATION
  Report Type: Spontaneous
  Country: US (occurrence: US)
  Receive Date: 20190425
  Receipt Date: 20190425
  Transmission Date: 20190711
  Serious: No
  Sender: FDA-Public Use
  Company Number: None

PATIENT
  Sex: Female

DRUGS (2)
  1. AZELASTINE 0.1% NASAL SOLUTION [Suspect]
     Active Substance: AZELASTINE HYDROCHLORIDE
  2. FLUTICASONE 16G MCG/ACT NASAL SOLUTION [Suspect]
     Active Substance: FLUTICASONE

REACTIONS (5)
  - Nasal dryness [None]
  - Drug hypersensitivity [None]
  - Epistaxis [None]
  - Mucosal inflammation [None]
  - Ear pain [None]
